FAERS Safety Report 6037969-8 (Version None)
Quarter: 2009Q1

REPORT INFORMATION
  Report Type: 
  Country: None (occurrence: None)
  Receive Date: 20090115
  Receipt Date: 20090105
  Transmission Date: 20090719
  Serious: Yes (Other)
  Sender: FDA-Public Use
  Company Number: US-AMGEN-KDL326860

PATIENT
  Sex: Male

DRUGS (3)
  1. EPOGEN [Suspect]
     Indication: DIALYSIS
     Route: 065
     Dates: start: 20080501
  2. REVLIMID [Concomitant]
  3. DEXAMETHASONE [Concomitant]

REACTIONS (1)
  - THERAPEUTIC RESPONSE DECREASED [None]
